FAERS Safety Report 4855023-5 (Version None)
Quarter: 2005Q4

REPORT INFORMATION
  Report Type: 
  Country: None (occurrence: None)
  Receive Date: 20051214
  Receipt Date: 20051201
  Transmission Date: 20060501
  Serious: Yes (Hospitalization)
  Sender: FDA-Public Use
  Company Number: 2005163785

PATIENT
  Age: 78 Year
  Sex: Male

DRUGS (5)
  1. DOXAZOSIN MESYLATE [Suspect]
     Indication: HYPERTENSION
     Dosage: 4 MG, ORAL
     Route: 048
     Dates: start: 20050118
  2. VALSARTAN [Suspect]
     Indication: HYPERTENSION
     Dosage: 80 MG, ORAL
     Route: 048
     Dates: start: 20050118
  3. ADALAT [Concomitant]
  4. FLUITRAN (TRICHLORMETHIAZIDE) [Concomitant]
  5. CALSLOT (MANIDIPINE HYDROCHLORIDE) [Concomitant]

REACTIONS (2)
  - PYELONEPHRITIS [None]
  - PYREXIA [None]
